FAERS Safety Report 6824482-0 (Version None)
Quarter: 2010Q3

REPORT INFORMATION
  Report Type: 
  Country: None (occurrence: None)
  Receive Date: 20100708
  Receipt Date: 20061027
  Transmission Date: 20110219
  Serious: No
  Sender: FDA-Public Use
  Company Number: US-PFIZER INC-2006133135

PATIENT
  Sex: Male
  Weight: 108.86 kg

DRUGS (8)
  1. CHANTIX [Suspect]
     Indication: SMOKING CESSATION THERAPY
     Dates: start: 20060901
  2. METHADONE [Concomitant]
  3. MORPHINE SULFATE [Concomitant]
  4. LASIX [Concomitant]
  5. MONOPRIL [Concomitant]
  6. LIPITOR [Concomitant]
  7. BACTRIM [Concomitant]
  8. TAMSULOSIN HCL [Concomitant]
     Indication: PROSTATIC DISORDER

REACTIONS (6)
  - DRUG INEFFECTIVE [None]
  - ERUCTATION [None]
  - GASTRIC DISORDER [None]
  - MALAISE [None]
  - RETCHING [None]
  - SNEEZING [None]
